FAERS Safety Report 7442312-3 (Version None)
Quarter: 2011Q2

REPORT INFORMATION
  Report Type: 
  Country: None (occurrence: None)
  Receive Date: 20110425
  Receipt Date: 20110425
  Transmission Date: 20111010
  Serious: Yes (Other)
  Sender: FDA-Public Use
  Company Number: None

PATIENT
  Age: 62 Year
  Sex: Male
  Weight: 58.9676 kg

DRUGS (3)
  1. SULFAMETHOXAZOLE AND TRIMETHOPRIM [Concomitant]
  2. AMOXICILLIN -F- [Concomitant]
  3. OMNARIS [Suspect]

REACTIONS (7)
  - DEPRESSION [None]
  - HEADACHE [None]
  - FATIGUE [None]
  - UPPER-AIRWAY COUGH SYNDROME [None]
  - DISTURBANCE IN ATTENTION [None]
  - INSOMNIA [None]
  - HOT FLUSH [None]
